FAERS Safety Report 9441655 (Version 3)
Quarter: 2013Q4

REPORT INFORMATION
  Report Type: Spontaneous
  Country: US (occurrence: US)
  Receive Date: 20130806
  Receipt Date: 20131016
  Transmission Date: 20140711
  Serious: Yes (Hospitalization, Other)
  Sender: FDA-Public Use
  Company Number: US-BIOGENIDEC-2013BI071430

PATIENT
  Age: 0 Day
  Sex: Male

DRUGS (1)
  1. AVONEX [Suspect]
     Indication: MATERNAL EXPOSURE TIMING UNSPECIFIED
     Route: 064
     Dates: start: 20120402, end: 20120719

REACTIONS (6)
  - Ventricular septal defect [Unknown]
  - Cardiac disorder [Not Recovered/Not Resolved]
  - Jaundice [Unknown]
  - Blood glucose abnormal [Unknown]
  - Somnolence [Unknown]
  - Feeding disorder neonatal [Unknown]
